FAERS Safety Report 5061973-X (Version None)
Quarter: 2006Q3

REPORT INFORMATION
  Report Type: 
  Country: None (occurrence: None)
  Receive Date: 20060726
  Receipt Date: 20060714
  Transmission Date: 20061208
  Serious: Yes (Hospitalization)
  Sender: FDA-Public Use
  Company Number: US-AMGEN-US186295

PATIENT
  Age: 44 Year
  Sex: Male
  Weight: 157 kg

DRUGS (7)
  1. ARANESP [Suspect]
     Indication: DIALYSIS
     Route: 042
  2. VERAPAMIL [Concomitant]
  3. PROTONIX [Concomitant]
  4. REGLAN [Concomitant]
  5. NEPHROX [Concomitant]
  6. PERCOCET [Concomitant]
  7. MORPHINE [Concomitant]
     Route: 042

REACTIONS (2)
  - INGUINAL MASS [None]
  - MASS [None]
